FAERS Safety Report 7419338-9 (Version None)
Quarter: 2011Q2

REPORT INFORMATION
  Report Type: 
  Country: None (occurrence: None)
  Receive Date: 20110415
  Receipt Date: 20110406
  Transmission Date: 20111010
  Serious: Yes (Hospitalization)
  Sender: FDA-Public Use
  Company Number: US-ASTRAZENECA-2011SE12191

PATIENT
  Age: 71 Year
  Sex: Male

DRUGS (3)
  1. MUCINEX [Suspect]
     Route: 065
  2. SYMBICORT [Suspect]
     Dosage: 160/4.5 MICROGRAMS 2 PUFFS BID
     Route: 055
     Dates: start: 20101212
  3. SYMBICORT [Suspect]
     Dosage: 160/4.5 MICROGRAMS 2 PUFFS BID
     Route: 055
     Dates: start: 20090101

REACTIONS (1)
  - VIRAL INFECTION [None]
